FAERS Safety Report 16763539 (Version 1)
Quarter: 2019Q3

REPORT INFORMATION
  Report Type: Spontaneous
  Country: FR (occurrence: FR)
  Receive Date: 20190902
  Receipt Date: 20190902
  Transmission Date: 20191005
  Serious: Yes (Life-Threatening)
  Sender: FDA-Public Use
  Company Number: FR-PFIZER INC-2019373400

PATIENT
  Age: 18 Year
  Sex: Female

DRUGS (4)
  1. TERCIAN [CYAMEMAZINE TARTRATE] [Suspect]
     Active Substance: CYAMEMAZINE
     Dosage: UNK
     Route: 048
     Dates: start: 20190729, end: 20190729
  2. ALPRAZOLAM. [Suspect]
     Active Substance: ALPRAZOLAM
     Dosage: 120 DF, SINGLE
     Route: 048
     Dates: start: 20190729, end: 20190729
  3. ZOLPIDEM [Suspect]
     Active Substance: ZOLPIDEM TARTRATE
     Dosage: 14 DF, SINGLE
     Route: 048
     Dates: start: 20190729, end: 20190729
  4. SERESTA [Suspect]
     Active Substance: OXAZEPAM
     Dosage: 20 DF, SINGLE
     Route: 048
     Dates: start: 20190729, end: 20190729

REACTIONS (6)
  - Lung disorder [Recovered/Resolved]
  - Coma [Recovered/Resolved]
  - Intentional overdose [Recovered/Resolved]
  - Disease recurrence [Recovered/Resolved]
  - Endotracheal intubation [Recovered/Resolved]
  - Toxicity to various agents [Recovered/Resolved]

NARRATIVE: CASE EVENT DATE: 20190729
